FAERS Safety Report 25741526 (Version 1)
Quarter: 2025Q3

REPORT INFORMATION
  Report Type: Spontaneous
  Country: US (occurrence: US)
  Receive Date: 20250829
  Receipt Date: 20250829
  Transmission Date: 20251020
  Serious: Yes (Other)
  Sender: SANDOZ
  Company Number: US-002147023-NVSC2023US140120

PATIENT
  Sex: Female
  Weight: 72.562 kg

DRUGS (13)
  1. CLOBETASOL PROPIONATE [Suspect]
     Active Substance: CLOBETASOL PROPIONATE
     Indication: Psoriatic arthropathy
     Route: 065
  2. COSENTYX [Suspect]
     Active Substance: SECUKINUMAB
     Indication: Psoriatic arthropathy
     Route: 065
  3. DICLOFENAC [Suspect]
     Active Substance: DICLOFENAC
     Indication: Product used for unknown indication
     Route: 065
  4. DICYCLOMINE HYDROCHLORIDE [Suspect]
     Active Substance: DICYCLOMINE HYDROCHLORIDE
     Indication: Product used for unknown indication
     Route: 065
  5. ERGOCALCIFEROL [Suspect]
     Active Substance: ERGOCALCIFEROL
     Indication: Product used for unknown indication
     Route: 065
  6. HYDROXYCHLOROQUINE SULFATE [Suspect]
     Active Substance: HYDROXYCHLOROQUINE SULFATE
     Indication: Psoriatic arthropathy
     Route: 065
  7. HUMIRA [Suspect]
     Active Substance: ADALIMUMAB
     Indication: Product used for unknown indication
     Route: 065
  8. METHOTREXATE [Suspect]
     Active Substance: METHOTREXATE
     Indication: Psoriatic arthropathy
     Route: 065
  9. OLUX [Suspect]
     Active Substance: CLOBETASOL PROPIONATE
     Indication: Product used for unknown indication
     Route: 065
  10. PILOCARPINE [Suspect]
     Active Substance: PILOCARPINE
     Indication: Product used for unknown indication
     Route: 065
  11. SALAGEN [Suspect]
     Active Substance: PILOCARPINE HYDROCHLORIDE
     Indication: Product used for unknown indication
     Route: 065
  12. TEMAZEPAM [Suspect]
     Active Substance: TEMAZEPAM
     Indication: Product used for unknown indication
     Route: 065
  13. TRIAZOLAM [Suspect]
     Active Substance: TRIAZOLAM
     Indication: Product used for unknown indication
     Route: 065

REACTIONS (14)
  - Sicca syndrome [Unknown]
  - Polyarthritis [Unknown]
  - Musculoskeletal discomfort [Unknown]
  - Hormone level abnormal [Unknown]
  - Depression [Unknown]
  - Anxiety [Unknown]
  - Hot flush [Unknown]
  - Intermenstrual bleeding [Not Recovered/Not Resolved]
  - Fatigue [Unknown]
  - Vitamin D deficiency [Unknown]
  - Dysphagia [Unknown]
  - Photosensitivity reaction [Unknown]
  - Urinary tract infection [Unknown]
  - Drug ineffective [Unknown]
